FAERS Safety Report 13442759 (Version 1)
Quarter: 2017Q2

REPORT INFORMATION
  Report Type: Spontaneous
  Country: GB (occurrence: GB)
  Receive Date: 20170414
  Receipt Date: 20170414
  Transmission Date: 20170830
  Serious: Yes (Death, Hospitalization, Other)
  Sender: FDA-Public Use
  Company Number: GB-CELGENEUS-GBR-20170401470

PATIENT

DRUGS (2)
  1. DEXAMETHASONE. [Suspect]
     Active Substance: DEXAMETHASONE
     Indication: PLASMA CELL MYELOMA
     Route: 065
  2. IMNOVID [Suspect]
     Active Substance: POMALIDOMIDE
     Indication: PLASMA CELL MYELOMA
     Dosage: DOSE ESCALATION 2MG, 3MG, 4MG
     Route: 048

REACTIONS (10)
  - Cytopenia [Unknown]
  - Plasma cell myeloma [Unknown]
  - Thrombocytopenia [Unknown]
  - Rash [Unknown]
  - Death [Fatal]
  - Infection [Unknown]
  - Neutropenia [Unknown]
  - Sepsis [Unknown]
  - Anaemia [Unknown]
  - Constipation [Unknown]
